FAERS Safety Report 9300827 (Version 4)
Quarter: 2013Q3

REPORT INFORMATION
  Report Type: Report from Study
  Country: US (occurrence: US)
  Receive Date: 20130521
  Receipt Date: 20130802
  Transmission Date: 20140515
  Serious: Yes (Hospitalization)
  Sender: FDA-Public Use
  Company Number: US-PFIZER INC-2013093556

PATIENT
  Age: 73 Year
  Sex: Female
  Weight: 91.9 kg

DRUGS (15)
  1. CRIZOTINIB [Suspect]
     Indication: INFLAMMATORY MYOFIBROBLASTIC TUMOUR
     Dosage: 250 MG, 2X/DAY
     Route: 048
     Dates: start: 20130207, end: 20130320
  2. ASPIRIN [Concomitant]
     Indication: CARDIOVASCULAR EVENT PROPHYLAXIS
     Dosage: 81 MG TABLET (S) ENTERIC COATED TAKE 1 PO QDAY
     Route: 048
     Dates: start: 2003
  3. BIOTIN [Concomitant]
     Indication: DRY MOUTH
     Dosage: 5 MG, TID
     Route: 048
  4. CALCIUM WITH VITAMIN D [Concomitant]
     Indication: OSTEOPOROSIS PROPHYLAXIS
     Dosage: CALCIUM 600 MG / VITAMIN D 200 IU, BID
     Route: 048
     Dates: start: 2012
  5. FENOFIBRATE [Concomitant]
     Indication: HYPERCHOLESTEROLAEMIA
     Dosage: 54 MG TABLET TAKE 1 PO DAILY
     Route: 048
     Dates: start: 2003
  6. OMEPRAZOLE MAGNESIUM [Concomitant]
     Indication: GASTROOESOPHAGEAL REFLUX DISEASE
     Dosage: 20 MG, QDAY
     Route: 048
     Dates: start: 2010
  7. PROVENTIL HFA [Concomitant]
     Dosage: 90 UG, WITH ADAPTER (GM) TAKE 2 INHALATION
     Route: 045
  8. RAMIPRIL [Concomitant]
     Indication: HYPERTENSION
     Dosage: 2.5 MG CAPSULE TAKE 1 PO QDAY
     Route: 048
     Dates: start: 2003
  9. SIMVASTATIN [Concomitant]
     Dosage: 20 MG TABLET TAKE 1 PO DAILY
     Route: 048
  10. SPIRIVA [Concomitant]
     Indication: CHRONIC OBSTRUCTIVE PULMONARY DISEASE
     Dosage: 18 UG, 1X/DAY WITH DEVICE TAKE 1 INH OF THE CONTENTS OF 1CAPSULE BY INHALATION
     Route: 055
     Dates: start: 20120828
  11. SYMBICORT [Concomitant]
     Indication: CHRONIC OBSTRUCTIVE PULMONARY DISEASE
     Dosage: BUDESONIDE 160 MCG /FORMOTEROL FUMARATE DIHYDRATE 4.5 MCG AEROSOL WITH ADAPTER, ONE DOSE AS NEEDED
     Route: 055
     Dates: start: 20121207
  12. VENLAFAXINE HYDROCHLORIDE [Concomitant]
     Indication: DEPRESSION
     Dosage: 75 MG, QDAY
     Route: 048
     Dates: start: 2011
  13. OXYGEN [Concomitant]
     Indication: CHRONIC OBSTRUCTIVE PULMONARY DISEASE
     Dosage: 2 LITERS, CONTINUOUS AS NEEDED
     Route: 045
     Dates: start: 2012
  14. ALBUTEROL SULFATE [Concomitant]
     Indication: CHRONIC OBSTRUCTIVE PULMONARY DISEASE
     Dosage: 2 INHALATIONS AS NEEDED (ORALLY INHALED)
     Route: 055
     Dates: start: 20120828
  15. PLAVIX [Concomitant]
     Indication: CORONARY ARTERY DISEASE
     Dosage: UNK
     Dates: start: 2003

REACTIONS (2)
  - Cardiac failure congestive [Recovered/Resolved]
  - Myocardial ischaemia [Recovered/Resolved]
